FAERS Safety Report 7199101-7 (Version None)
Quarter: 2010Q4

REPORT INFORMATION
  Report Type: 
  Country: None (occurrence: None)
  Receive Date: 20101126
  Receipt Date: 20100915
  Transmission Date: 20110411
  Serious: Yes (Other)
  Sender: FDA-Public Use
  Company Number: CIP10002216

PATIENT
  Age: 63 Year
  Sex: Female

DRUGS (3)
  1. ACTONEL [Suspect]
     Indication: PRODUCT USED FOR UNKNOWN INDICATION
     Dosage: 35 MG ONCE WEEKLY, ORAL
     Route: 048
     Dates: start: 20000101
  2. CALCIUM (CALCIUM) [Concomitant]
  3. ERGOCALCIFEROL [Concomitant]

REACTIONS (6)
  - BACK DISORDER [None]
  - COUGH [None]
  - DIZZINESS [None]
  - FALL [None]
  - LUMBAR VERTEBRAL FRACTURE [None]
  - PELVIC FRACTURE [None]
